FAERS Safety Report 7069468-9 (Version None)
Quarter: 2010Q4

REPORT INFORMATION
  Report Type: 
  Country: None (occurrence: None)
  Receive Date: 20101028
  Receipt Date: 20100216
  Transmission Date: 20110411
  Serious: No
  Sender: FDA-Public Use
  Company Number: DE-WYE-H13868510

PATIENT
  Age: 65 Year
  Sex: Female

DRUGS (1)
  1. PANTOPRAZOLE [Suspect]
     Route: 065

REACTIONS (2)
  - GASTRIC HYPOMOTILITY [None]
  - OESOPHAGEAL PAIN [None]
